FAERS Safety Report 5796222-8 (Version None)
Quarter: 2008Q2

REPORT INFORMATION
  Report Type: 
  Country: None (occurrence: None)
  Receive Date: 20080618
  Receipt Date: 20070810
  Transmission Date: 20081010
  Serious: Yes (Other)
  Sender: FDA-Public Use
  Company Number: 200715746US

PATIENT
  Age: 70 Year
  Sex: Female
  Weight: 63.63 kg

DRUGS (6)
  1. LANTUS [Suspect]
     Indication: TYPE 2 DIABETES MELLITUS
     Dosage: 11 U QD
  2. LANTUS [Suspect]
     Indication: TYPE 2 DIABETES MELLITUS
     Dosage: 11 U QD
  3. OPTICLIK [Suspect]
     Indication: TYPE 2 DIABETES MELLITUS
     Dosage: A FEW MONTHS
  4. HUMALOG [Concomitant]
  5. RALOXIFENE HYDROCHLORIDE (EVISTA) [Concomitant]
  6. ANTIHYPERTENSIVE [Concomitant]

REACTIONS (2)
  - BLOOD GLUCOSE INCREASED [None]
  - HYPOGLYCAEMIA [None]
